FAERS Safety Report 9699241 (Version 3)
Quarter: 2015Q3

REPORT INFORMATION
  Report Type: Spontaneous
  Country: US (occurrence: US)
  Receive Date: 20131120
  Receipt Date: 20150803
  Transmission Date: 20151125
  Serious: No
  Sender: FDA-Public Use
  Company Number: US-GILEAD-2007-0014696

PATIENT
  Age: 33 Year
  Sex: Female

DRUGS (2)
  1. LANOXIN [Concomitant]
     Active Substance: DIGOXIN
     Indication: PULMONARY ARTERIAL HYPERTENSION
     Route: 048
  2. LETAIRIS [Suspect]
     Active Substance: AMBRISENTAN
     Indication: PULMONARY ARTERIAL HYPERTENSION
     Route: 048
     Dates: start: 20071204, end: 20080122

REACTIONS (4)
  - Depression [Unknown]
  - Head discomfort [Unknown]
  - Swelling [Unknown]
  - Hot flush [Unknown]
